FAERS Safety Report 6346959-7 (Version None)
Quarter: 2009Q3

REPORT INFORMATION
  Report Type: 
  Country: None (occurrence: None)
  Receive Date: 20090908
  Receipt Date: 20090908
  Transmission Date: 20100115
  Serious: Yes (Hospitalization)
  Sender: FDA-Public Use
  Company Number: None

PATIENT
  Age: 23 Year
  Sex: Male

DRUGS (2)
  1. SEROQUEL [Suspect]
     Indication: INSOMNIA
     Dosage: 100 MG TWO TABS PO QHS PO
     Route: 048
     Dates: start: 20090723, end: 20090819
  2. PAXIL [Suspect]
     Indication: DEPRESSION
     Dosage: 20 MG QDAY PO
     Route: 048
     Dates: start: 20090723, end: 20090819

REACTIONS (2)
  - FACIAL PALSY [None]
  - PRIAPISM [None]
